FAERS Safety Report 13073344 (Version 1)
Quarter: 2016Q4

REPORT INFORMATION
  Report Type: Report from Study
  Country: None (occurrence: ES)
  Receive Date: 20161229
  Receipt Date: 20161229
  Transmission Date: 20170207
  Serious: Yes (Death)
  Sender: FDA-Public Use
  Company Number: ES-ABBVIE-16K-144-1825132-00

PATIENT
  Age: 79 Year
  Sex: Female

DRUGS (1)
  1. DUODOPA [Suspect]
     Active Substance: CARBIDOPA\LEVODOPA
     Indication: PARKINSON^S DISEASE
     Route: 050
     Dates: start: 201602

REACTIONS (1)
  - Myocardial infarction [Fatal]

NARRATIVE: CASE EVENT DATE: 20161012
